FAERS Safety Report 6946950-3 (Version None)
Quarter: 2010Q3

REPORT INFORMATION
  Report Type: 
  Country: None (occurrence: None)
  Receive Date: 20100827
  Receipt Date: 20090818
  Transmission Date: 20110219
  Serious: No
  Sender: FDA-Public Use
  Company Number: US-ABBOTT-09P-163-0593403-00

PATIENT
  Age: 68 Year
  Sex: Male
  Weight: 87.622 kg

DRUGS (9)
  1. NIASPAN [Suspect]
     Indication: HIGH DENSITY LIPOPROTEIN DECREASED
     Route: 048
     Dates: start: 20090129
  2. NIASPAN [Suspect]
     Dates: start: 20050415, end: 20090712
  3. NIASPAN [Suspect]
     Indication: HIGH DENSITY LIPOPROTEIN DECREASED
     Dates: start: 20050213
  4. NIASPAN [Suspect]
     Dates: start: 20050415
  5. HYDROCHLOROTHIAZIDE [Concomitant]
     Indication: HYPERTENSION
     Dates: start: 20061001
  6. TOPROL-XL [Concomitant]
     Indication: HYPERTENSION
     Dates: start: 20061001
  7. COZAAR [Concomitant]
     Indication: HYPERTENSION
     Dates: start: 20061001
  8. ALLOPURINOL [Concomitant]
     Indication: GOUT
  9. ASPIRIN [Concomitant]
     Indication: MYOCARDIAL INFARCTION
     Dates: start: 20061001

REACTIONS (4)
  - FLUSHING [None]
  - PRURITUS [None]
  - RASH [None]
  - RASH VESICULAR [None]
